FAERS Safety Report 4324746-9 (Version None)
Quarter: 2004Q1

REPORT INFORMATION
  Report Type: 
  Country: None (occurrence: None)
  Receive Date: 20040326
  Receipt Date: 20030609
  Transmission Date: 20041129
  Serious: Yes (Hospitalization, Disabling, Other)
  Sender: FDA-Public Use
  Company Number: WAES 0306USA01131

PATIENT
  Age: 43 Year
  Sex: Female
  Weight: 65 kg

DRUGS (32)
  1. VICODIN ES [Concomitant]
     Indication: BACK PAIN
     Route: 048
     Dates: start: 20020101
  2. VICODIN ES [Concomitant]
     Dates: end: 20010101
  3. NORCO [Concomitant]
     Indication: BACK PAIN
     Dates: start: 20020117, end: 20020621
  4. ANALGESIC OR ANESTHETIC (UNSPECIFIED) [Concomitant]
     Indication: BACK PAIN
     Route: 051
     Dates: start: 20010115, end: 20010115
  5. ANALGESIC OR ANESTHETIC (UNSPECIFIED) [Concomitant]
     Route: 051
     Dates: start: 20020227, end: 20020227
  6. BECONASE [Concomitant]
  7. CELEBREX [Concomitant]
     Indication: BACK PAIN
     Dates: end: 20000731
  8. FLEXERIL [Concomitant]
     Indication: MUSCLE SPASMS
     Dates: start: 20020601
  9. VALIUM [Concomitant]
     Indication: MUSCLE SPASMS
     Dates: start: 20010621
  10. ESTRATEST [Concomitant]
     Dates: end: 20010101
  11. NEUROTONIN CAPSULES [Concomitant]
     Indication: NEUROPATHY PERIPHERAL
     Dates: start: 20020417
  12. NEUROTONIN CAPSULES [Concomitant]
     Indication: CARPAL TUNNEL SYNDROME
     Dates: start: 20020417
  13. MICROZIDE [Suspect]
     Dates: end: 20020621
  14. MICROZIDE [Suspect]
     Dates: end: 20011101
  15. ZESTORETIC [Concomitant]
     Dates: end: 20020621
  16. PRINZIDE [Suspect]
     Route: 048
     Dates: start: 20020523, end: 20020617
  17. PREVACID [Concomitant]
     Dates: end: 20010101
  18. CLARITIN [Concomitant]
     Dates: end: 20011121
  19. FELDENE [Suspect]
     Dates: start: 20020423, end: 20020621
  20. VIOXX [Suspect]
     Indication: BACK PAIN
     Route: 048
     Dates: start: 20000801, end: 20000805
  21. VIOXX [Suspect]
     Route: 048
     Dates: start: 20000806, end: 20010601
  22. VIOXX [Suspect]
     Route: 048
     Dates: start: 20010628, end: 20010721
  23. VIOXX [Suspect]
     Route: 048
     Dates: start: 20010722, end: 20020116
  24. VIOXX [Suspect]
     Route: 048
     Dates: start: 20020117, end: 20020423
  25. VIOXX [Suspect]
     Indication: PAIN
     Route: 048
     Dates: start: 20000801, end: 20000805
  26. VIOXX [Suspect]
     Route: 048
     Dates: start: 20000806, end: 20010601
  27. VIOXX [Suspect]
     Route: 048
     Dates: start: 20010628, end: 20010721
  28. VIOXX [Suspect]
     Route: 048
     Dates: start: 20010722, end: 20020116
  29. VIOXX [Suspect]
     Route: 048
     Dates: start: 20020117, end: 20020423
  30. IMITREX [Concomitant]
     Dates: start: 19940101
  31. TRAZODONE HYDROCHLORIDE [Concomitant]
     Dates: end: 20010101
  32. EFFEXOR [Concomitant]
     Dates: end: 20010101

REACTIONS (36)
  - ALOPECIA [None]
  - ANAEMIA [None]
  - ANKYLOSING SPONDYLITIS [None]
  - CARDIAC FLUTTER [None]
  - CARPAL TUNNEL SYNDROME [None]
  - CHEST PAIN [None]
  - CONSTIPATION [None]
  - CORONARY ARTERY STENOSIS [None]
  - DRUG INEFFECTIVE [None]
  - DYSPHAGIA [None]
  - DYSPHORIA [None]
  - EJECTION FRACTION DECREASED [None]
  - ELECTROCARDIOGRAM ST-T CHANGE [None]
  - FACET JOINT SYNDROME [None]
  - FACIAL BONES FRACTURE [None]
  - FALL [None]
  - FATIGUE [None]
  - FIBROMYALGIA [None]
  - GASTROOESOPHAGEAL REFLUX DISEASE [None]
  - HYPERAESTHESIA [None]
  - HYPOTHYROIDISM [None]
  - INTERVERTEBRAL DISC DEGENERATION [None]
  - INTERVERTEBRAL DISC DISPLACEMENT [None]
  - INTERVERTEBRAL DISC PROTRUSION [None]
  - JAW DISORDER [None]
  - NAUSEA [None]
  - NEPHRITIS INTERSTITIAL [None]
  - OSTEOPOROSIS [None]
  - POLYARTHRITIS [None]
  - PSORIATIC ARTHROPATHY [None]
  - RAYNAUD'S PHENOMENON [None]
  - REITER'S SYNDROME [None]
  - RENAL FAILURE [None]
  - SACROILIITIS [None]
  - SPINAL CORD COMPRESSION [None]
  - WEIGHT INCREASED [None]
